FAERS Safety Report 6677876-0 (Version None)
Quarter: 2010Q2

REPORT INFORMATION
  Report Type: 
  Country: None (occurrence: None)
  Receive Date: 20100412
  Receipt Date: 20100331
  Transmission Date: 20101027
  Serious: Yes (Hospitalization)
  Sender: FDA-Public Use
  Company Number: US-ALEXION-A201000339

PATIENT
  Sex: Female

DRUGS (10)
  1. SOLIRIS [Suspect]
     Indication: PAROXYSMAL NOCTURNAL HAEMOGLOBINURIA
     Dosage: 600 MG, QW X4
     Route: 042
     Dates: start: 20090819
  2. SOLIRIS [Suspect]
     Dosage: 900 MG, UNK
     Route: 042
     Dates: start: 20090922
  3. LORTAB [Concomitant]
     Indication: HEADACHE
     Dosage: 7.5/500 MG, PRN
     Route: 048
  4. PREDNISOLONE [Concomitant]
     Indication: PAROXYSMAL NOCTURNAL HAEMOGLOBINURIA
     Dosage: 20 MG, QD
     Route: 048
  5. TYLENOL (CAPLET) [Concomitant]
     Indication: PAIN
     Dosage: 650 MG, PRN
     Route: 048
  6. ZOPINOX [Concomitant]
     Indication: ASTHMA
     Dosage: INHALED
  7. ALBUTEROL [Concomitant]
     Indication: ASTHMA
     Dosage: INHALED
  8. CYCLOSPORINE [Concomitant]
     Indication: APLASTIC ANAEMIA
     Dosage: 200 MG, BID
     Route: 048
  9. RANITIDINE HCL [Concomitant]
     Dosage: 5 MG, BID
     Route: 048
  10. DEPO PROVERA                       /00115201/ [Concomitant]
     Indication: CONTRACEPTION
     Dosage: Q3 MONTHS

REACTIONS (1)
  - APLASTIC ANAEMIA [None]
